FAERS Safety Report 14297434 (Version 3)
Quarter: 2017Q4

REPORT INFORMATION
  Report Type: Spontaneous
  Country: CA (occurrence: CA)
  Receive Date: 20171218
  Receipt Date: 20171229
  Transmission Date: 20180321
  Serious: Yes (Other)
  Sender: FDA-Public Use
  Company Number: CA-SA-2017SA249094

PATIENT
  Age: 77 Year
  Sex: Male

DRUGS (4)
  1. SOLOSTAR [Suspect]
     Active Substance: DEVICE
  2. PIOGLITAZONE. [Suspect]
     Active Substance: PIOGLITAZONE
     Route: 065
  3. LANTUS SOLOSTAR [Suspect]
     Active Substance: INSULIN GLARGINE
     Dosage: DOSE:18 UNIT(S)
     Route: 051
  4. GLICLAZIDE [Suspect]
     Active Substance: GLICLAZIDE
     Route: 065

REACTIONS (6)
  - Hyperglycaemia [Recovered/Resolved]
  - Product use issue [Unknown]
  - Tremor [Recovering/Resolving]
  - Hyperhidrosis [Recovering/Resolving]
  - Delirium [Recovering/Resolving]
  - Retching [Recovering/Resolving]

NARRATIVE: CASE EVENT DATE: 20171205
